FAERS Safety Report 7772257-0 (Version None)
Quarter: 2011Q3

REPORT INFORMATION
  Report Type: 
  Country: None (occurrence: None)
  Receive Date: 20110922
  Receipt Date: 20110418
  Transmission Date: 20111222
  Serious: No
  Sender: FDA-Public Use
  Company Number: US-ASTRAZENECA-2007UW25713

PATIENT
  Age: 584 Month
  Sex: Female
  Weight: 109.8 kg

DRUGS (6)
  1. SEROQUEL [Suspect]
     Indication: SLEEP DISORDER
     Dosage: 25 TO 200 MG
     Route: 048
     Dates: start: 20051001, end: 20081101
  2. LOVASTATIN [Concomitant]
     Dosage: HALF TAB DAILY
     Dates: start: 20061206
  3. XENICAL [Concomitant]
     Dates: start: 20061206
  4. HYDROCHLOROTHIAZIDE [Concomitant]
     Dosage: HALF TAB DAILY
     Dates: start: 20061206
  5. SEROQUEL [Suspect]
     Route: 048
     Dates: start: 20061206
  6. AMITRIPTYLINE HCL [Concomitant]
     Dates: start: 20061206

REACTIONS (3)
  - ARTHRALGIA [None]
  - TYPE 2 DIABETES MELLITUS [None]
  - PAIN IN EXTREMITY [None]
